FAERS Safety Report 6433700-2 (Version None)
Quarter: 2009Q4

REPORT INFORMATION
  Report Type: 
  Country: None (occurrence: None)
  Receive Date: 20091110
  Receipt Date: 20091030
  Transmission Date: 20100525
  Serious: Yes (Other)
  Sender: FDA-Public Use
  Company Number: US-ROCHE-653289

PATIENT
  Sex: Female

DRUGS (15)
  1. XELODA [Suspect]
     Indication: COLON CANCER
     Route: 065
     Dates: start: 20090701
  2. XELODA [Suspect]
     Dosage: 2 WEEKS ON AND 1 WEEK OFF
     Route: 065
     Dates: start: 20090901
  3. XELODA [Suspect]
     Route: 065
  4. GOLD BOND [Concomitant]
  5. METAMUCIL [Concomitant]
  6. FISH OIL [Concomitant]
  7. FLEXERIL [Concomitant]
  8. OXYCODONE [Concomitant]
  9. MORPHINE [Concomitant]
  10. XANAX [Concomitant]
  11. VYTORIN [Concomitant]
  12. METHYLIN [Concomitant]
     Dosage: DRUG REPORTED AS METHYLINE
  13. NEXIUM [Concomitant]
  14. VITAMIN B-12 [Concomitant]
  15. IRON [Concomitant]

REACTIONS (10)
  - ARTHRALGIA [None]
  - BACK PAIN [None]
  - CONSTIPATION [None]
  - DYSSTASIA [None]
  - HYPOAESTHESIA [None]
  - PAIN IN EXTREMITY [None]
  - PARAESTHESIA [None]
  - SKIN EXFOLIATION [None]
  - SKIN NECROSIS [None]
  - VISION BLURRED [None]
